FAERS Safety Report 4388192-4 (Version None)
Quarter: 2004Q2

REPORT INFORMATION
  Report Type: 
  Country: None (occurrence: None)
  Receive Date: 20040629
  Receipt Date: 20040629
  Transmission Date: 20050107
  Serious: Yes (Other)
  Sender: FDA-Public Use
  Company Number: None

PATIENT
  Age: 49 Year
  Sex: Female
  Weight: 113.3993 kg

DRUGS (6)
  1. AVELOX [Suspect]
     Indication: PHARYNGEAL ULCERATION
     Dosage: 1 TABLET DAILY ORAL
     Route: 048
     Dates: start: 20040529, end: 20040607
  2. AVELOX [Suspect]
     Indication: PHARYNGOLARYNGEAL PAIN
     Dosage: 1 TABLET DAILY ORAL
     Route: 048
     Dates: start: 20040529, end: 20040607
  3. AVELOX [Suspect]
     Indication: SINUSITIS
     Dosage: 1 TABLET DAILY ORAL
     Route: 048
     Dates: start: 20040529, end: 20040607
  4. TEQUIN [Suspect]
     Indication: BRONCHITIS
     Dosage: 1 OR 2 DAILY ORAL
     Route: 048
     Dates: start: 20030514, end: 20030524
  5. TEQUIN [Suspect]
     Indication: PNEUMONIA
     Dosage: 1 OR 2 DAILY ORAL
     Route: 048
     Dates: start: 20030514, end: 20030524
  6. HYDROCODONE [Concomitant]

REACTIONS (14)
  - ARTHRALGIA [None]
  - BACK PAIN [None]
  - BURNING SENSATION [None]
  - BURSITIS [None]
  - INSOMNIA [None]
  - JOINT STIFFNESS [None]
  - JOINT SWELLING [None]
  - MOVEMENT DISORDER [None]
  - OEDEMA PERIPHERAL [None]
  - PAIN [None]
  - PAIN IN EXTREMITY [None]
  - SKIN DISCOLOURATION [None]
  - TENDON RUPTURE [None]
  - TENDONITIS [None]
